FAERS Safety Report 6010240-6 (Version None)
Quarter: 2008Q4

REPORT INFORMATION
  Report Type: 
  Country: None (occurrence: None)
  Receive Date: 20081218
  Receipt Date: 20080623
  Transmission Date: 20090506
  Serious: No
  Sender: FDA-Public Use
  Company Number: A0708425A

PATIENT
  Age: 59 Year
  Sex: Female
  Weight: 54.5 kg

DRUGS (3)
  1. FLUTICASONE PROPIONATE [Suspect]
     Dosage: 4SPR PER DAY
     Route: 045
     Dates: start: 20080101, end: 20080101
  2. LUMIGAN [Concomitant]
     Dosage: 1DROP AT NIGHT
     Route: 047
  3. AZOPT [Concomitant]
     Dosage: 1DROP TWICE PER DAY
     Route: 047

REACTIONS (2)
  - PRODUCT QUALITY ISSUE [None]
  - SINUSITIS [None]
